FAERS Safety Report 8168408-9 (Version None)
Quarter: 2012Q1

REPORT INFORMATION
  Report Type: 
  Country: None (occurrence: None)
  Receive Date: 20120227
  Receipt Date: 20120217
  Transmission Date: 20120608
  Serious: Yes (Other)
  Sender: FDA-Public Use
  Company Number: CA-CELGENEUS-028-21880-11103542

PATIENT
  Sex: Male

DRUGS (11)
  1. REVLIMID [Suspect]
     Dosage: 25 MILLIGRAM
     Route: 048
  2. PROSCAR [Concomitant]
     Dosage: 5 MILLIGRAM
     Route: 065
  3. ASPIRIN [Concomitant]
     Dosage: 81 MILLIGRAM
     Route: 065
  4. VITAMIN B-12 [Concomitant]
     Route: 065
  5. FLOMAX [Concomitant]
     Dosage: .4 MILLIGRAM
     Route: 065
  6. LYRICA [Concomitant]
     Dosage: 150 MILLIGRAM
     Route: 065
  7. FOSAMAX [Concomitant]
     Dosage: 70 MILLIGRAM
     Route: 065
  8. DEXAMETHASONE [Concomitant]
     Dosage: 24 MILLIGRAM
     Route: 065
  9. CALCIUM + VITAMIN D [Concomitant]
     Route: 065
  10. FOSAMAX [Concomitant]
     Indication: JAW DISORDER
     Dosage: 70 MILLIGRAM
     Route: 065
  11. MULTI-VITAMINS [Concomitant]
     Route: 048

REACTIONS (3)
  - JAW DISORDER [None]
  - FLUSHING [None]
  - BONE LESION [None]
